FAERS Safety Report 6469373-2 (Version None)
Quarter: 2009Q4

REPORT INFORMATION
  Report Type: 
  Country: None (occurrence: None)
  Receive Date: 20091203
  Receipt Date: 20091130
  Transmission Date: 20100525
  Serious: Yes (Death, Other)
  Sender: FDA-Public Use
  Company Number: US-ELI_LILLY_AND_COMPANY-US200912000257

PATIENT
  Age: 85 Year
  Sex: Male

DRUGS (2)
  1. ALIMTA [Suspect]
     Indication: LUNG NEOPLASM MALIGNANT
     Dosage: 500 MG, UNK
  2. WARFARIN SODIUM [Concomitant]
     Indication: COAGULOPATHY

REACTIONS (2)
  - DEATH [None]
  - HAEMOPTYSIS [None]
